FAERS Safety Report 17240897 (Version 2)
Quarter: 2020Q1

REPORT INFORMATION
  Report Type: Spontaneous
  Country: US (occurrence: US)
  Receive Date: 20200107
  Receipt Date: 20200331
  Transmission Date: 20200409
  Serious: No
  Sender: FDA-Public Use
  Company Number: US-SHIRE-US202000311

PATIENT
  Age: 20 Year
  Sex: Female
  Weight: 72.56 kg

DRUGS (5)
  1. TAKHZYRO [Suspect]
     Active Substance: LANADELUMAB-FLYO
     Dosage: UNK
     Route: 065
     Dates: start: 20191223
  2. TAKHZYRO [Suspect]
     Active Substance: LANADELUMAB-FLYO
     Indication: HEREDITARY ANGIOEDEMA WITH NORMAL C1 ESTERASE INHIBITOR
     Dosage: 300 MILLIGRAM, 1X/2WKS, INJECTION
     Route: 050
     Dates: start: 2018
  3. KALBITOR [Concomitant]
     Active Substance: ECALLANTIDE
     Indication: HEREDITARY ANGIOEDEMA WITH NORMAL C1 ESTERASE INHIBITOR
  4. FIRAZYR [Suspect]
     Active Substance: ICATIBANT ACETATE
     Indication: HEREDITARY ANGIOEDEMA WITH NORMAL C1 ESTERASE INHIBITOR
     Dosage: 30 MILLIGRAM, AS REQ^D, INJCTION
     Route: 050
     Dates: start: 2017
  5. FIRAZYR [Suspect]
     Active Substance: ICATIBANT ACETATE
     Dosage: UNK
     Route: 050
     Dates: start: 20191224

REACTIONS (2)
  - Hereditary angioedema [Recovered/Resolved]
  - Inappropriate schedule of product administration [Recovered/Resolved]

NARRATIVE: CASE EVENT DATE: 20191224
